FAERS Safety Report 18817127 (Version 1)
Quarter: 2021Q1

REPORT INFORMATION
  Report Type: Spontaneous
  Country: US (occurrence: US)
  Receive Date: 20210201
  Receipt Date: 20210201
  Transmission Date: 20210419
  Serious: No
  Sender: FDA-Public Use
  Company Number: US-PFIZER INC-2021056271

PATIENT
  Age: 59 Year
  Sex: Male
  Weight: 96.9 kg

DRUGS (4)
  1. VFEND [Suspect]
     Active Substance: VORICONAZOLE
     Indication: HYPERTENSION
     Dosage: 200 MG TWICE DAILY
     Route: 048
  2. VFEND [Suspect]
     Active Substance: VORICONAZOLE
     Indication: SCEDOSPORIUM INFECTION
  3. VFEND [Suspect]
     Active Substance: VORICONAZOLE
     Indication: SPINAL STENOSIS
  4. VFEND [Suspect]
     Active Substance: VORICONAZOLE
     Indication: NEISSERIA INFECTION

REACTIONS (1)
  - Arthralgia [Unknown]
